FAERS Safety Report 9980679 (Version 2)
Quarter: 2014Q2

REPORT INFORMATION
  Report Type: Spontaneous
  Country: JP (occurrence: JP)
  Receive Date: 20140307
  Receipt Date: 20140403
  Transmission Date: 20141212
  Serious: Yes (Life-Threatening, Other)
  Sender: FDA-Public Use
  Company Number: JP-BEH-2014040912

PATIENT
  Age: 68 Year
  Sex: Female

DRUGS (3)
  1. ALBUMINAR 5% I.V. INJECTION 12.5G/250ML [Suspect]
     Indication: BLOOD ALBUMIN DECREASED
     Dosage: DOSE: 2 VIALS OF 12.5G/250ML
     Route: 042
     Dates: start: 20140220, end: 20140220
  2. ALBUMINAR 5% I.V. INJECTION 12.5G/250ML [Suspect]
     Dosage: DOSE: 2 VIALS OF 12.5G/250ML
     Route: 042
     Dates: start: 20140224, end: 20140224
  3. ANESTHETIC DRUG [Concomitant]

REACTIONS (2)
  - Asthma [Recovering/Resolving]
  - Blood pressure decreased [Recovering/Resolving]
